FAERS Safety Report 6867260 (Version 9)
Quarter: 2020Q3

REPORT INFORMATION
  Report Type: Report from Study
  Country: US (occurrence: US)
  Receive Date: 20081226
  Receipt Date: 20110513
  Transmission Date: 20201104
  Serious: Yes (Death, Hospitalization)
  Sender: FDA-Public Use
  Company Number: US-JNJFOC-20081206159

PATIENT
  Age: 61 Year
  Sex: Female
  Weight: 54.89 kg

DRUGS (12)
  1. CISAPRIDE [Suspect]
     Active Substance: CISAPRIDE
     Route: 048
  2. CISAPRIDE [Suspect]
     Active Substance: CISAPRIDE
     Route: 048
  3. PROMENSIL [Concomitant]
     Indication: MENOPAUSAL SYMPTOMS
     Route: 048
  4. CISAPRIDE [Suspect]
     Active Substance: CISAPRIDE
     Indication: GASTROOESOPHAGEAL REFLUX DISEASE
     Route: 048
  5. CYANOCOBALAMIN. [Concomitant]
     Active Substance: CYANOCOBALAMIN
     Indication: FATIGUE
     Route: 065
  6. CISAPRIDE [Suspect]
     Active Substance: CISAPRIDE
     Route: 048
  7. CISAPRIDE [Suspect]
     Active Substance: CISAPRIDE
     Indication: GASTROINTESTINAL MOTILITY DISORDER
     Route: 048
  8. CISAPRIDE [Suspect]
     Active Substance: CISAPRIDE
     Route: 048
  9. ZOVIRAX [Concomitant]
     Active Substance: ACYCLOVIR
     Indication: HERPES SIMPLEX
     Route: 061
  10. CHLORDIAZEPOXIDE. [Concomitant]
     Active Substance: CHLORDIAZEPOXIDE
     Indication: ABDOMINAL RIGIDITY
     Route: 048
  11. POLLEN IMMUNOTHERAPY [Concomitant]
     Indication: SEASONAL ALLERGY
     Dosage: EVERY 4 TO 8 WEEKS
     Route: 065
  12. CALCIUM CARBONATE. [Concomitant]
     Active Substance: CALCIUM CARBONATE
     Indication: NUTRITIONAL SUPPLEMENTATION
     Route: 048

REACTIONS (4)
  - Dehydration [Recovered/Resolved]
  - Urinary tract infection [Recovered/Resolved]
  - Adenocarcinoma pancreas [Fatal]
  - Respiratory distress [Recovered/Resolved]

NARRATIVE: CASE EVENT DATE: 20081007
